FAERS Safety Report 10347132 (Version 1)
Quarter: 2014Q3

REPORT INFORMATION
  Report Type: Spontaneous
  Country: US (occurrence: None)
  Receive Date: 20140725
  Receipt Date: 20140725
  Transmission Date: 20150326
  Serious: Yes (Life-Threatening, Other)
  Sender: FDA-Public Use
  Company Number: None

PATIENT
  Age: 32 Year
  Sex: Male
  Weight: 63.5 kg

DRUGS (1)
  1. LEXAPRO [Suspect]
     Active Substance: ESCITALOPRAM OXALATE
     Indication: PANIC ATTACK
     Route: 048
     Dates: start: 20140608, end: 20140713

REACTIONS (14)
  - Hyperhidrosis [None]
  - Irritability [None]
  - Muscle rigidity [None]
  - Cardiac murmur [None]
  - Dizziness [None]
  - Anxiety [None]
  - Anger [None]
  - Drug withdrawal syndrome [None]
  - Blood pressure increased [None]
  - Muscle spasms [None]
  - Heart rate increased [None]
  - Musculoskeletal stiffness [None]
  - Mood swings [None]
  - Dyspnoea [None]

NARRATIVE: CASE EVENT DATE: 20140608
